FAERS Safety Report 8255279-5 (Version None)
Quarter: 2012Q1

REPORT INFORMATION
  Report Type: 
  Country: None (occurrence: None)
  Receive Date: 20120330
  Receipt Date: 20120319
  Transmission Date: 20120608
  Serious: Yes (Hospitalization)
  Sender: FDA-Public Use
  Company Number: 1236672

PATIENT
  Age: 69 Year
  Sex: Male

DRUGS (1)
  1. DOBUTAMINE HCL [Suspect]
     Indication: CARDIAC FAILURE CONGESTIVE
     Dosage: 5 MCG/KG/MIN, UNKNOWN, INTRAVENOUS DRIP
     Route: 041

REACTIONS (8)
  - RIGHT VENTRICULAR FAILURE [None]
  - CONDITION AGGRAVATED [None]
  - TRICUSPID VALVE INCOMPETENCE [None]
  - SYSTOLIC DYSFUNCTION [None]
  - RENAL FAILURE [None]
  - SOMNOLENCE [None]
  - DILATATION VENTRICULAR [None]
  - MITRAL VALVE INCOMPETENCE [None]
